FAERS Safety Report 4358986-X (Version None)
Quarter: 2004Q2

REPORT INFORMATION
  Report Type: 
  Country: None (occurrence: None)
  Receive Date: 20040512
  Receipt Date: 20040423
  Transmission Date: 20050107
  Serious: Yes (Other)
  Sender: FDA-Public Use
  Company Number: USA020413949

PATIENT
  Age: 76 Year
  Sex: Female
  Weight: 68 kg

DRUGS (10)
  1. EVISTA [Suspect]
     Indication: OSTEOPOROSIS PROPHYLAXIS
     Dosage: 60 MG/1 DAY
     Dates: start: 20020321
  2. PROZAC [Suspect]
     Indication: DEPRESSION
     Dosage: 10 MG/1 DAY
     Dates: start: 19990101, end: 20020101
  3. FORTEO [Suspect]
     Indication: OSTEOPOROSIS
     Dates: start: 20040101, end: 20040416
  4. SYNTHROID [Concomitant]
  5. KETOPROFEN ^BAYER^ (KETOPROFEN) [Concomitant]
  6. HYOSCYAMINE [Concomitant]
  7. FLUOXETINE [Concomitant]
  8. NEURONTIN [Concomitant]
  9. MULTI-VITAMIN [Concomitant]
  10. PAIN KILLER [Concomitant]

REACTIONS (6)
  - ARTHRALGIA [None]
  - CHEST WALL PAIN [None]
  - LOWER LIMB FRACTURE [None]
  - OSTEOPOROSIS [None]
  - PAIN IN EXTREMITY [None]
  - TREATMENT NONCOMPLIANCE [None]
